FAERS Safety Report 8480338-1 (Version None)
Quarter: 2012Q2

REPORT INFORMATION
  Report Type: 
  Country: None (occurrence: None)
  Receive Date: 20120630
  Receipt Date: 20120619
  Transmission Date: 20120825
  Serious: Yes (Hospitalization)
  Sender: FDA-Public Use
  Company Number: GB-TEVA-344961ISR

PATIENT
  Age: 84 Year
  Sex: Female

DRUGS (1)
  1. FLUCONAZOLE [Suspect]
     Route: 048

REACTIONS (1)
  - DEPRESSED LEVEL OF CONSCIOUSNESS [None]
